FAERS Safety Report 8488648-9 (Version None)
Quarter: 2012Q3

REPORT INFORMATION
  Report Type: 
  Country: None (occurrence: None)
  Receive Date: 20120705
  Receipt Date: 20120628
  Transmission Date: 20120928
  Serious: Yes (Hospitalization)
  Sender: FDA-Public Use
  Company Number: FR-PFIZER INC-2012155338

PATIENT
  Age: 63 Year
  Sex: Male

DRUGS (2)
  1. PROZAC [Suspect]
     Dosage: UNK
     Route: 048
     Dates: start: 20120511, end: 20120525
  2. ATORVASTATIN [Suspect]
     Dosage: 80 MG, 1X/DAY
     Route: 048
     Dates: start: 20120510, end: 20120525

REACTIONS (7)
  - CHOLESTASIS [None]
  - PYREXIA [None]
  - TRANSAMINASES INCREASED [None]
  - C-REACTIVE PROTEIN INCREASED [None]
  - DRUG-INDUCED LIVER INJURY [None]
  - EOSINOPHILIA [None]
  - GAMMA-GLUTAMYLTRANSFERASE INCREASED [None]
